FAERS Safety Report 23469365 (Version 1)
Quarter: 2024Q1

REPORT INFORMATION
  Report Type: Spontaneous
  Country: CA (occurrence: None)
  Receive Date: 20240202
  Receipt Date: 20240202
  Transmission Date: 20240410
  Serious: Yes (Other)
  Sender: FDA-Public Use
  Company Number: CA-ROCHE-3501476

PATIENT
  Age: 41 Year
  Sex: Female

DRUGS (1)
  1. RITUXIMAB [Suspect]
     Active Substance: RITUXIMAB
     Indication: Relapsing multiple sclerosis
     Route: 041

REACTIONS (6)
  - Fatigue [Unknown]
  - Malaise [Unknown]
  - Off label use [Unknown]
  - Pneumonia [Unknown]
  - Product dose omission issue [Unknown]
  - Productive cough [Unknown]
